FAERS Safety Report 9302150 (Version 2)
Quarter: 2013Q4

REPORT INFORMATION
  Report Type: Spontaneous
  Country: US (occurrence: US)
  Receive Date: 20130522
  Receipt Date: 20131108
  Transmission Date: 20140711
  Serious: Yes (Hospitalization, Other)
  Sender: FDA-Public Use
  Company Number: US-B.I. PHARMACEUTICALS,INC./RIDGEFIELD-2013-BI-14123BP

PATIENT
  Age: 73 Year
  Sex: Female
  Weight: 106.59 kg

DRUGS (11)
  1. PRADAXA [Suspect]
     Indication: ANTICOAGULANT THERAPY
     Dosage: 300 MG
     Route: 048
     Dates: start: 20110922, end: 20120913
  2. PRADAXA [Suspect]
     Indication: ATRIAL FIBRILLATION
  3. ULTRAM [Concomitant]
     Indication: PAIN
     Route: 048
  4. ZOCOR [Concomitant]
     Dosage: 40 MG
     Route: 048
  5. PRILOSEC [Concomitant]
     Dosage: 20 MG
     Route: 048
  6. PRINIVIL [Concomitant]
     Dosage: 40 MG
     Route: 048
  7. COREG [Concomitant]
     Dosage: 50 MG
     Route: 048
  8. LASIX [Concomitant]
     Dosage: 160 MG
     Route: 048
  9. XANAX [Concomitant]
     Route: 048
  10. VALTURNA [Concomitant]
     Route: 048
  11. NITROSTAT [Concomitant]
     Indication: CHEST PAIN
     Route: 060

REACTIONS (3)
  - Upper gastrointestinal haemorrhage [Unknown]
  - Renal failure acute [Unknown]
  - Haemorrhagic anaemia [Unknown]
